FAERS Safety Report 9000080 (Version 1)
Quarter: 2013Q1

REPORT INFORMATION
  Report Type: Report from Study
  Country: US (occurrence: US)
  Receive Date: 20130102
  Receipt Date: 20130102
  Transmission Date: 20140127
  Serious: No
  Sender: FDA-Public Use
  Company Number: US-VERTEX PHARMACEUTICALS INC.-2012-026744

PATIENT
  Sex: Female
  Weight: 73 kg

DRUGS (9)
  1. VX-950 (TELAPREVIR) [Suspect]
     Indication: HEPATITIS C
     Dosage: 750 MG, TID
     Route: 048
     Dates: start: 2012
  2. PEGASYS [Suspect]
     Indication: HEPATITIS C
     Dosage: 180 ?G, QW
     Route: 058
     Dates: start: 2012
  3. RIBASPHERE [Suspect]
     Indication: HEPATITIS C
     Dosage: 1 DF, BID
     Dates: start: 2012
  4. PROMETHAZINE [Concomitant]
     Dosage: Q 12 H
  5. PRILOSEC                           /00661201/ [Concomitant]
     Dosage: 20 MG, UNK
  6. FELODIPINE [Concomitant]
     Dosage: 10 MG, QD
  7. ASCORBIC ACID [Concomitant]
     Dosage: 500 MG, QD
  8. CALCIUM [Concomitant]
     Dosage: 600 MG, QD
  9. CVS VITAMIN D [Concomitant]
     Dosage: 1000 UT, QD

REACTIONS (3)
  - Pollakiuria [Unknown]
  - Throat irritation [Unknown]
  - Diarrhoea [Unknown]
